FAERS Safety Report 14734228 (Version 2)
Quarter: 2018Q2

REPORT INFORMATION
  Report Type: Spontaneous
  Country: IT (occurrence: IT)
  Receive Date: 20180409
  Receipt Date: 20180424
  Transmission Date: 20180711
  Serious: Yes (Life-Threatening, Other)
  Sender: FDA-Public Use
  Company Number: IT-PFIZER INC-2557378

PATIENT
  Age: 68 Year
  Sex: Female

DRUGS (5)
  1. PACLITAXEL. [Suspect]
     Active Substance: PACLITAXEL
     Indication: OVARIAN GERM CELL CANCER STAGE II
     Dosage: 280 MG, CYCLICAL
     Route: 042
     Dates: start: 20100119, end: 20100119
  2. TRIMETON [Concomitant]
     Active Substance: CHLORPHENIRAMINE MALEATE
     Dosage: 10 MG, UNK
  3. SOLDESAM [Concomitant]
     Active Substance: DEXAMETHASONE
     Dosage: 12 MG, UNK
  4. NAVOBAN [Concomitant]
     Active Substance: TROPISETRON HYDROCHLORIDE
     Dosage: 5 MG, UNK
  5. RANITIDINE. [Concomitant]
     Active Substance: RANITIDINE
     Dosage: 100 MG, UNK

REACTIONS (2)
  - Cardio-respiratory arrest [Recovered/Resolved]
  - Anaphylactic shock [Recovered/Resolved]

NARRATIVE: CASE EVENT DATE: 20100119
